FAERS Safety Report 15837571 (Version 1)
Quarter: 2019Q1

REPORT INFORMATION
  Report Type: Spontaneous
  Country: JP (occurrence: JP)
  Receive Date: 20190117
  Receipt Date: 20190117
  Transmission Date: 20190417
  Serious: Yes (Hospitalization)
  Sender: FDA-Public Use
  Company Number: JP-MYLANLABS-2019M1003585

PATIENT
  Age: 62 Year
  Sex: Female

DRUGS (25)
  1. PREDNISOLONE. [Concomitant]
     Active Substance: PREDNISOLONE
     Dosage: 30 MILLIGRAM, QD
     Route: 065
  2. SODIUM PICOSULFATE [Concomitant]
     Active Substance: SODIUM PICOSULFATE
     Indication: CONSTIPATION
     Route: 048
  3. ERYTHROMYCIN. [Suspect]
     Active Substance: ERYTHROMYCIN
     Indication: CONSTIPATION
     Dosage: STARTED ON DAY 28 OF HOSPITALISATION
     Route: 048
  4. OXYCONTIN [Interacting]
     Active Substance: OXYCODONE HYDROCHLORIDE
     Dosage: (15MG TWICE DAILY )
     Route: 048
  5. MAGNESIUM OXIDE. [Concomitant]
     Active Substance: MAGNESIUM OXIDE
     Indication: CONSTIPATION
     Dosage: 660 MG THREE TIMES A DAY
  6. ANAPEINE [Concomitant]
     Active Substance: ROPIVACAINE HYDROCHLORIDE
     Indication: EPIDURAL ANAESTHESIA
     Route: 050
  7. ERYTHROMYCIN. [Interacting]
     Active Substance: ERYTHROMYCIN
     Dosage: 800MG PER DAY
     Route: 048
  8. OXYCONTIN [Interacting]
     Active Substance: OXYCODONE HYDROCHLORIDE
     Dosage: 60 MILLIGRAM, QD
     Route: 048
  9. OXYCONTIN [Interacting]
     Active Substance: OXYCODONE HYDROCHLORIDE
     Dosage: ON DAY 42
     Route: 048
  10. STRONGER NEO-MINOPHAGEN C          /02058101/ [Concomitant]
     Indication: TOXICITY TO VARIOUS AGENTS
     Route: 065
  11. OXYCONTIN [Interacting]
     Active Substance: OXYCODONE HYDROCHLORIDE
     Indication: CANCER PAIN
     Dosage: EXTENDED RELEASE 5MG TABLET TWICE DAILY (AFTER BREAKFAST AND DINNER)
     Route: 048
  12. OXINORM                            /00045603/ [Interacting]
     Active Substance: OXYCODONE HYDROCHLORIDE
     Indication: CANCER PAIN
     Route: 048
  13. MYCOPHENOLIC ACID. [Concomitant]
     Active Substance: MYCOPHENOLIC ACID
     Indication: TOXICITY TO VARIOUS AGENTS
     Dosage: STARTED FROM DAY 10 OF HOSPITALISATION
     Route: 065
  14. NIVOLUMAB [Concomitant]
     Active Substance: NIVOLUMAB
     Indication: METASTATIC MALIGNANT MELANOMA
     Dosage: 3MG/KG/DAY EVERY TWO WEEKS
     Route: 042
  15. PREDNISOLONE. [Concomitant]
     Active Substance: PREDNISOLONE
     Indication: TOXICITY TO VARIOUS AGENTS
     Dosage: FROM DAY 2 OF HOSPITALISATION
     Route: 065
  16. OXINORM                            /00045603/ [Interacting]
     Active Substance: OXYCODONE HYDROCHLORIDE
     Dosage: 110-120 MG PER DAY
     Route: 048
  17. PREDNISOLONE. [Concomitant]
     Active Substance: PREDNISOLONE
     Dosage: FROM DAY 4 OF HOSPITALISATION
     Route: 065
  18. URSODEOXYCHOLIC-ACID [Concomitant]
     Indication: TOXICITY TO VARIOUS AGENTS
     Route: 065
  19. NAPROXEN. [Concomitant]
     Active Substance: NAPROXEN
     Indication: CANCER PAIN
     Dosage: 100 MG THREE TIMES A DAY
     Route: 048
  20. SODIUM PHOSPHATE AND SODIUM BIPHOSPHATE [Concomitant]
     Active Substance: SODIUM PHOSPHATE\SODIUM PHOSPHATE, MONOBASIC, UNSPECIFIED FORM
     Indication: CONSTIPATION
     Route: 065
  21. OXYCONTIN [Interacting]
     Active Substance: OXYCODONE HYDROCHLORIDE
     Dosage: ON DAY 38
     Route: 048
  22. OXINORM                            /00045603/ [Interacting]
     Active Substance: OXYCODONE HYDROCHLORIDE
     Dosage: ON DAY 28 AND 29 SHE RECEIVED 50MG, ON DAY 30 AND 31 SHE RECEIVED 60MG AND ON DAY 32 SHE RECEIVED...
     Route: 048
  23. OLANZAPINE. [Concomitant]
     Active Substance: OLANZAPINE
     Indication: EPIGASTRIC DISCOMFORT
     Route: 048
  24. SENNOSIDE                          /00571901/ [Concomitant]
     Active Substance: SENNOSIDES A AND B
     Indication: CONSTIPATION
     Route: 065
  25. IPILIMUMAB [Concomitant]
     Active Substance: IPILIMUMAB
     Indication: METASTATIC MALIGNANT MELANOMA
     Route: 065

REACTIONS (3)
  - Somnolence [Recovered/Resolved]
  - Nausea [Recovered/Resolved]
  - Drug interaction [Recovered/Resolved]
